FAERS Safety Report 7373976-0 (Version None)
Quarter: 2011Q1

REPORT INFORMATION
  Report Type: 
  Country: None (occurrence: None)
  Receive Date: 20110325
  Receipt Date: 20110322
  Transmission Date: 20110831
  Serious: No
  Sender: FDA-Public Use
  Company Number: US-PFIZER INC-2011063577

PATIENT
  Sex: Female
  Weight: 68 kg

DRUGS (3)
  1. PROPRANOLOL [Concomitant]
     Dosage: UNK
  2. ADVIL CONGESTION RELIEF [Suspect]
     Indication: NASOPHARYNGITIS
     Dosage: 200 MG, 3X/DAY
     Route: 048
     Dates: start: 20110310, end: 20110312
  3. NEXIUM [Concomitant]
     Dosage: UNK

REACTIONS (4)
  - ABDOMINAL DISCOMFORT [None]
  - FEELING ABNORMAL [None]
  - GASTROOESOPHAGEAL REFLUX DISEASE [None]
  - NAUSEA [None]
